FAERS Safety Report 4854475-4 (Version None)
Quarter: 2005Q4

REPORT INFORMATION
  Report Type: 
  Country: None (occurrence: None)
  Receive Date: 20051213
  Receipt Date: 20051130
  Transmission Date: 20060501
  Serious: Yes (Other)
  Sender: FDA-Public Use
  Company Number: 2005162753

PATIENT
  Age: 8 Year
  Sex: Female

DRUGS (2)
  1. GENOTROPIN [Suspect]
     Indication: HYPOPITUITARISM
     Dosage: 1 MG (1 MG DAILY) SUBCUTANEOUS
     Route: 058
     Dates: start: 20020417, end: 20051124
  2. CARBAMAZEPINE [Concomitant]

REACTIONS (6)
  - ACANTHOSIS NIGRICANS [None]
  - ALANINE AMINOTRANSFERASE INCREASED [None]
  - BLOOD CHOLESTEROL INCREASED [None]
  - INSULIN-LIKE GROWTH FACTOR INCREASED [None]
  - LIVER FUNCTION TEST ABNORMAL [None]
  - OBESITY [None]
